FAERS Safety Report 14031998 (Version 1)
Quarter: 2017Q4

REPORT INFORMATION
  Report Type: Report from Study
  Country: US (occurrence: US)
  Receive Date: 20171002
  Receipt Date: 20171002
  Transmission Date: 20180321
  Serious: Yes (Hospitalization)
  Sender: FDA-Public Use
  Company Number: US-GILEAD-2017-0295558

PATIENT
  Age: 23 Year
  Sex: Female

DRUGS (2)
  1. AZTREONAM LYSINE [Suspect]
     Active Substance: AZTREONAM LYSINE
     Indication: PSEUDOMONAS INFECTION
     Dosage: 75 MG, UNK
     Route: 055
     Dates: start: 20101026
  2. AZTREONAM LYSINE [Suspect]
     Active Substance: AZTREONAM LYSINE
     Indication: CYSTIC FIBROSIS LUNG

REACTIONS (9)
  - Dyspepsia [Unknown]
  - Feeling abnormal [Unknown]
  - Constipation [Unknown]
  - Dehydration [Unknown]
  - Cystic fibrosis respiratory infection suppression [Unknown]
  - Vomiting [Unknown]
  - Dyspnoea [Unknown]
  - Food poisoning [Unknown]
  - Gastroenteritis viral [Unknown]
